FAERS Safety Report 23154279 (Version 1)
Quarter: 2023Q4

REPORT INFORMATION
  Report Type: Spontaneous
  Country: TR (occurrence: TR)
  Receive Date: 20231107
  Receipt Date: 20231107
  Transmission Date: 20240110
  Serious: Yes (Other)
  Sender: FDA-Public Use
  Company Number: TR-TEVA-2023-TR-2943260

PATIENT

DRUGS (1)
  1. DOXYCYCLINE [Suspect]
     Active Substance: DOXYCYCLINE
     Indication: Product used for unknown indication
     Dosage: DOXYCYCLINE HYCLATE, TETRADOX  100 MG KAPSUL
     Route: 048

REACTIONS (3)
  - Gastric haemorrhage [Unknown]
  - Gastrointestinal perforation [Unknown]
  - Hypophagia [Unknown]
